FAERS Safety Report 5472046-6 (Version None)
Quarter: 2007Q3

REPORT INFORMATION
  Report Type: 
  Country: None (occurrence: None)
  Receive Date: 20070928
  Receipt Date: 20070917
  Transmission Date: 20080115
  Serious: Yes (Other)
  Sender: FDA-Public Use
  Company Number: NL-PFIZER INC-2007078736

PATIENT
  Age: 55 Year
  Sex: Male

DRUGS (2)
  1. METHYLPREDNISOLONE ACETATE [Suspect]
     Indication: CARPAL TUNNEL SYNDROME
  2. METHYLPREDNISOLONE ACETATE [Suspect]
     Indication: PAIN

REACTIONS (5)
  - ABSCESS [None]
  - PAIN [None]
  - SCAR [None]
  - SKIN INFLAMMATION [None]
  - SYNOVITIS [None]
